FAERS Safety Report 4504108-1 (Version None)
Quarter: 2004Q4

REPORT INFORMATION
  Report Type: 
  Country: None (occurrence: None)
  Receive Date: 20041115
  Receipt Date: 20041104
  Transmission Date: 20050328
  Serious: Yes (Other)
  Sender: FDA-Public Use
  Company Number: 2004-11-0406

PATIENT
  Sex: Male

DRUGS (1)
  1. INTRON A [Suspect]

REACTIONS (5)
  - APHASIA [None]
  - EYE ROLLING [None]
  - MUSCLE TWITCHING [None]
  - PUPILLARY REFLEX IMPAIRED [None]
  - TREMOR [None]
